FAERS Safety Report 20458432 (Version 4)
Quarter: 2022Q3

REPORT INFORMATION
  Report Type: Spontaneous
  Country: GB (occurrence: GB)
  Receive Date: 20220211
  Receipt Date: 20220714
  Transmission Date: 20221026
  Serious: Yes (Other)
  Sender: FDA-Public Use
  Company Number: GB-ALNYLAM PHARMACEUTICALS, INC.-ALN-2022-000264

PATIENT
  Sex: Male

DRUGS (5)
  1. NEBIVOLOL [Suspect]
     Active Substance: NEBIVOLOL
     Indication: Atrial fibrillation
     Dosage: UNK
     Route: 065
  2. ONPATTRO [Suspect]
     Active Substance: PATISIRAN SODIUM
     Indication: Amyloidosis
     Dosage: 10 MILLIGRAM,THREE TIMES A WEEK
     Route: 042
  3. ONPATTRO [Suspect]
     Active Substance: PATISIRAN SODIUM
     Dosage: 17 MILLIGRAM, Q3W
     Route: 042
  4. ONPATTRO [Suspect]
     Active Substance: PATISIRAN SODIUM
     Dosage: 17 MILLIGRAM
     Route: 042
     Dates: start: 20200701
  5. ONPATTRO [Suspect]
     Active Substance: PATISIRAN SODIUM
     Dosage: 10 MILLIGRAM,THREE TIMES A WEEK
     Route: 042

REACTIONS (6)
  - Atrial fibrillation [Unknown]
  - Blood pressure decreased [Unknown]
  - Dizziness [Unknown]
  - Gait disturbance [Unknown]
  - Hypotension [Recovered/Resolved]
  - Off label use [Not Recovered/Not Resolved]
